FAERS Safety Report 5181272-5 (Version None)
Quarter: 2006Q4

REPORT INFORMATION
  Report Type: 
  Country: None (occurrence: None)
  Receive Date: 20061220
  Receipt Date: 20051128
  Transmission Date: 20070319
  Serious: No
  Sender: FDA-Public Use
  Company Number: US-GLAXOSMITHKLINE-A0583576A

PATIENT
  Age: 65 Year
  Sex: Female

DRUGS (3)
  1. COMMIT [Suspect]
     Dates: start: 20051120, end: 20051124
  2. LIPITOR [Concomitant]
  3. PLAVIX [Concomitant]

REACTIONS (2)
  - DYSPEPSIA [None]
  - HICCUPS [None]
